FAERS Safety Report 20687764 (Version 3)
Quarter: 2022Q4

REPORT INFORMATION
  Report Type: Other
  Country: DE (occurrence: None)
  Receive Date: 20220408
  Receipt Date: 20221212
  Transmission Date: 20230112
  Serious: No
  Sender: FDA-Public Use
  Company Number: DE-ROCHE-2971521

PATIENT
  Age: 28 Year
  Sex: Female

DRUGS (2)
  1. OCREVUS [Suspect]
     Active Substance: OCRELIZUMAB
     Indication: Relapsing-remitting multiple sclerosis
     Dosage: 600MG ONCE IN 189 DAYS
     Route: 042
     Dates: start: 20210825
  2. ALBUTEROL [Concomitant]
     Active Substance: ALBUTEROL

REACTIONS (19)
  - Hot flush [Recovered/Resolved]
  - Erythema [Recovered/Resolved]
  - C-reactive protein increased [Recovered/Resolved]
  - Burning sensation [Recovered/Resolved]
  - Asthenia [Recovered/Resolved]
  - Memory impairment [Recovered/Resolved]
  - Cardiovascular disorder [Unknown]
  - Headache [Recovered/Resolved]
  - Listless [Unknown]
  - Hypotension [Unknown]
  - Heart rate increased [Unknown]
  - Restless legs syndrome [Unknown]
  - Pollakiuria [Unknown]
  - Insomnia [Unknown]
  - Bacterial test positive [Recovered/Resolved]
  - Fatigue [Recovered/Resolved]
  - COVID-19 [Recovered/Resolved]
  - Nasopharyngitis [Not Recovered/Not Resolved]
  - Cough [Not Recovered/Not Resolved]

NARRATIVE: CASE EVENT DATE: 20210825
